FAERS Safety Report 8447267-0 (Version None)
Quarter: 2012Q2

REPORT INFORMATION
  Report Type: 
  Country: None (occurrence: None)
  Receive Date: 20120619
  Receipt Date: 20120611
  Transmission Date: 20120825
  Serious: Yes (Hospitalization, Other)
  Sender: FDA-Public Use
  Company Number: PHHY2012BR050855

PATIENT
  Age: 56 Year
  Sex: Male

DRUGS (4)
  1. FORMOTEROL FUMARATE [Suspect]
     Indication: FATIGUE
  2. ALLOPURINOL [Concomitant]
     Indication: BLOOD URIC ACID INCREASED
     Dosage: 1 TABLET DAILY
     Route: 048
  3. FORMOTEROL FUMARATE [Suspect]
     Indication: DYSPNOEA
     Dosage: 1 INHALATION IN THE MORNING AND 1 INHALATION AT NIGHT
     Dates: start: 20050101, end: 20120611
  4. DICLOFENAC SODIUM [Concomitant]
     Indication: OEDEMA PERIPHERAL
     Dosage: 1 DF, UNK (1 TABLET EVERY 12 HOURS)

REACTIONS (8)
  - SPEECH DISORDER [None]
  - EMPHYSEMA [None]
  - FATIGUE [None]
  - NASAL CONGESTION [None]
  - COUGH [None]
  - DYSPNOEA [None]
  - CHRONIC OBSTRUCTIVE PULMONARY DISEASE [None]
  - DYSGEUSIA [None]
